FAERS Safety Report 5222380-X (Version None)
Quarter: 2007Q1

REPORT INFORMATION
  Report Type: 
  Country: None (occurrence: None)
  Receive Date: 20070129
  Receipt Date: 20070118
  Transmission Date: 20070707
  Serious: Yes (Other)
  Sender: FDA-Public Use
  Company Number: 200616360EU

PATIENT
  Age: 39 Year
  Sex: Female

DRUGS (1)
  1. NICOTINE [Suspect]
     Dosage: 28MG PER DAY
     Route: 002
     Dates: start: 20050101

REACTIONS (2)
  - DEPENDENCE [None]
  - INCORRECT DRUG ADMINISTRATION DURATION [None]
